FAERS Safety Report 5140643-3 (Version None)
Quarter: 2006Q4

REPORT INFORMATION
  Report Type: 
  Country: None (occurrence: None)
  Receive Date: 20061025
  Receipt Date: 20061016
  Transmission Date: 20070319
  Serious: Yes (Hospitalization)
  Sender: FDA-Public Use
  Company Number: 2006126697

PATIENT
  Age: 53 Year
  Sex: Male

DRUGS (4)
  1. SULFASALAZINE [Suspect]
     Dosage: 4 DF (500 MG,INTERVAL: EVERY DAY), ORAL
     Route: 048
     Dates: start: 20060707, end: 20060816
  2. PREDNISONE TAB [Suspect]
     Dosage: 15 MG (INTERVAL: EVERY DAY), ORAL
     Route: 048
     Dates: end: 20060815
  3. FOSAMAX [Concomitant]
  4. CACIT D3 (CALCIUM CARBONATE, COLECALCIFEROL) [Concomitant]

REACTIONS (1)
  - NEUTROPENIA [None]
